FAERS Safety Report 10025027 (Version 3)
Quarter: 2014Q2

REPORT INFORMATION
  Report Type: Spontaneous
  Country: US (occurrence: US)
  Receive Date: 20140320
  Receipt Date: 20140630
  Transmission Date: 20141212
  Serious: Yes (Hospitalization, Other)
  Sender: FDA-Public Use
  Company Number: 2014SP001368

PATIENT
  Age: 49 Year
  Sex: Male

DRUGS (10)
  1. FLUOROURACIL [Suspect]
     Indication: COLON CANCER
     Route: 042
     Dates: start: 20140109
  2. FLUOROURACIL [Suspect]
     Indication: COLON CANCER
     Route: 042
     Dates: start: 20140129
  3. IRINOTECAN HCL [Suspect]
     Indication: COLON CANCER
     Route: 042
     Dates: start: 20140109
  4. IRINOTECAN HCL [Suspect]
     Indication: COLON CANCER
     Route: 042
     Dates: start: 20140129
  5. OXALIPLATIN [Suspect]
     Indication: COLON CANCER
     Route: 042
     Dates: start: 20140109
  6. OXALIPLATIN [Suspect]
     Indication: COLON CANCER
     Route: 042
     Dates: start: 20140129
  7. CALCIUM FOLINATE [Suspect]
     Indication: COLON CANCER
     Route: 042
     Dates: start: 20140109, end: 20140109
  8. CALCIUM FOLINATE [Suspect]
     Indication: COLON CANCER
     Route: 042
     Dates: start: 20140129
  9. BEVACIZUMAB [Suspect]
     Indication: COLON CANCER
     Route: 042
     Dates: start: 20140109, end: 20140109
  10. BEVACIZUMAB [Suspect]
     Indication: COLON CANCER
     Route: 042
     Dates: start: 20140129

REACTIONS (5)
  - Intestinal obstruction [Unknown]
  - Colitis [Unknown]
  - Constipation [Recovered/Resolved]
  - Abdominal pain [Unknown]
  - Febrile neutropenia [Recovered/Resolved]
